FAERS Safety Report 10380956 (Version 4)
Quarter: 2014Q4

REPORT INFORMATION
  Report Type: Spontaneous
  Country: JP (occurrence: JP)
  Receive Date: 20140813
  Receipt Date: 20141009
  Transmission Date: 20150528
  Serious: Yes (Hospitalization, Other)
  Sender: FDA-Public Use
  Company Number: JP-PFIZER INC-2014223385

PATIENT
  Age: 70 Year
  Sex: Female
  Weight: 54.2 kg

DRUGS (1)
  1. AMLODIN [Suspect]
     Active Substance: AMLODIPINE BESYLATE
     Dosage: UNK
     Route: 048

REACTIONS (5)
  - Haematochezia [Recovering/Resolving]
  - Pneumonia [Unknown]
  - Rectal ulcer haemorrhage [Unknown]
  - Cytomegalovirus enterocolitis [Unknown]
  - Constipation [Unknown]

NARRATIVE: CASE EVENT DATE: 200503
